FAERS Safety Report 5694080-3 (Version None)
Quarter: 2008Q2

REPORT INFORMATION
  Report Type: 
  Country: None (occurrence: None)
  Receive Date: 20080402
  Receipt Date: 20080324
  Transmission Date: 20081010
  Serious: No
  Sender: FDA-Public Use
  Company Number: 20084940

PATIENT
  Sex: Female

DRUGS (1)
  1. LIORESAL [Suspect]
     Indication: MUSCLE SPASTICITY
     Dosage: MCG, DAILY, INTRATHECAL
     Route: 039

REACTIONS (6)
  - FAECAL INCONTINENCE [None]
  - FLUID RETENTION [None]
  - HEADACHE [None]
  - MEDICAL DEVICE SITE REACTION [None]
  - MUSCLE SPASTICITY [None]
  - URINARY INCONTINENCE [None]
